FAERS Safety Report 25237658 (Version 4)
Quarter: 2025Q2

REPORT INFORMATION
  Report Type: Spontaneous
  Country: US (occurrence: US)
  Receive Date: 20250425
  Receipt Date: 20250521
  Transmission Date: 20250717
  Serious: Yes (Hospitalization, Other)
  Sender: UROGEN PHARMA
  Company Number: US-UROGEN PHARMA LTD.-2025-UGN-000060

PATIENT

DRUGS (4)
  1. JELMYTO [Suspect]
     Active Substance: MITOMYCIN
     Indication: Product used for unknown indication
     Dosage: 80 MILLIGRAM, ONCE A WEEK (INSTILLATION)
     Dates: start: 20250317, end: 20250317
  2. JELMYTO [Suspect]
     Active Substance: MITOMYCIN
     Dosage: 80 MILLIGRAM, ONCE A WEEK (INSTILLATION)
     Dates: start: 20250324, end: 20250324
  3. JELMYTO [Suspect]
     Active Substance: MITOMYCIN
     Dosage: 80 MILLIGRAM, ONCE A WEEK (INSTILLATION)
     Dates: start: 20250331, end: 20250331
  4. JELMYTO [Suspect]
     Active Substance: MITOMYCIN
     Dosage: 80 MILLIGRAM, ONCE A WEEK (INSTILLATION)
     Dates: start: 20250428, end: 20250428

REACTIONS (3)
  - Purulent discharge [Unknown]
  - Sepsis [Unknown]
  - Urinary tract infection [Unknown]

NARRATIVE: CASE EVENT DATE: 20250101
